FAERS Safety Report 12577080 (Version 2)
Quarter: 2016Q3

REPORT INFORMATION
  Report Type: Spontaneous
  Country: IL (occurrence: IL)
  Receive Date: 20160720
  Receipt Date: 20160725
  Transmission Date: 20161109
  Serious: Yes (Death, Other)
  Sender: FDA-Public Use
  Company Number: IL-SHIRE-IL201609009

PATIENT
  Age: 7 Decade
  Sex: Male

DRUGS (1)
  1. FOSRENOL [Suspect]
     Active Substance: LANTHANUM CARBONATE
     Indication: PRODUCT USED FOR UNKNOWN INDICATION
     Dosage: 1000 MG, 3X/DAY:TID
     Route: 048
     Dates: start: 201601

REACTIONS (1)
  - Death [Fatal]

NARRATIVE: CASE EVENT DATE: 201606
